FAERS Safety Report 25032277 (Version 1)
Quarter: 2025Q1

REPORT INFORMATION
  Report Type: Spontaneous
  Country: DE (occurrence: DE)
  Receive Date: 20250303
  Receipt Date: 20250303
  Transmission Date: 20250408
  Serious: Yes (Other)
  Sender: SANDOZ
  Company Number: DE-AMGEN-DEUNI2018118124

PATIENT
  Sex: Male
  Weight: 87 kg

DRUGS (26)
  1. DEXAMETHASONE [Suspect]
     Active Substance: DEXAMETHASONE
     Route: 065
     Dates: start: 20180910
  2. DEXAMETHASONE [Suspect]
     Active Substance: DEXAMETHASONE
     Indication: Plasma cell myeloma
     Route: 065
     Dates: start: 20180312
  3. DEXAMETHASONE [Suspect]
     Active Substance: DEXAMETHASONE
     Route: 065
     Dates: start: 20190311
  4. KYPROLIS [Suspect]
     Active Substance: CARFILZOMIB
     Indication: Plasma cell myeloma
     Route: 042
     Dates: start: 20180312, end: 20180313
  5. KYPROLIS [Suspect]
     Active Substance: CARFILZOMIB
     Route: 042
     Dates: start: 20180319
  6. LENALIDOMIDE [Suspect]
     Active Substance: LENALIDOMIDE
     Route: 065
     Dates: start: 20190311
  7. LENALIDOMIDE [Suspect]
     Active Substance: LENALIDOMIDE
     Indication: Plasma cell myeloma
     Route: 065
  8. LENALIDOMIDE [Suspect]
     Active Substance: LENALIDOMIDE
     Route: 065
     Dates: start: 20180312, end: 20190303
  9. ASPIRIN [Concomitant]
     Active Substance: ASPIRIN
     Indication: Prophylaxis
     Dosage: 100 MG, QD
     Route: 065
     Dates: start: 20180813
  10. B 12 [Concomitant]
     Indication: Vitamin B12 deficiency
     Dosage: 1 MG, QD
     Route: 065
     Dates: start: 20170822
  11. B 12 [Concomitant]
     Dosage: 1 MG, QD
     Route: 065
     Dates: start: 20170822
  12. BUPRENORPHINE [Concomitant]
     Active Substance: BUPRENORPHINE
     Indication: Pain
     Dosage: 52.5 UG, BID
     Route: 065
     Dates: start: 20180321
  13. CHOLECALCIFEROL [Concomitant]
     Active Substance: CHOLECALCIFEROL
     Indication: Vitamin D deficiency
     Dosage: 2000 I.E., QD
     Route: 065
     Dates: start: 20170822
  14. DRONABINOL [Concomitant]
     Active Substance: DRONABINOL
     Dosage: 9 TROPFEN, BID
     Route: 065
     Dates: start: 20191021
  15. DRONABINOL [Concomitant]
     Active Substance: DRONABINOL
     Indication: Prophylaxis
     Route: 065
     Dates: start: 20191021
  16. FENTANYL CITRATE [Concomitant]
     Active Substance: FENTANYL CITRATE
     Indication: Pain
     Route: 065
     Dates: start: 20170822, end: 20180403
  17. FENTANYL TRANSDERMAL SYSTEM [Concomitant]
     Active Substance: FENTANYL
     Indication: Pain
     Dosage: 175 MICROGRAM, QOD
     Route: 065
     Dates: start: 20170913, end: 20180320
  18. FERROUS GLYCINE SULFATE [Concomitant]
     Active Substance: FERROUS GLYCINE SULFATE
     Indication: Product used for unknown indication
     Dosage: 100 MG, QD
     Route: 065
     Dates: start: 20170822
  19. GABAPENTIN [Concomitant]
     Active Substance: GABAPENTIN
     Indication: Pain
     Dosage: 300 MILLIGRAM, TID
     Route: 065
     Dates: start: 20180910
  20. HYDROMORPHONE [Concomitant]
     Active Substance: HYDROMORPHONE
     Dosage: 2.6 UNK, QID
     Route: 065
     Dates: start: 20180403, end: 20180403
  21. HYDROMORPHONE [Concomitant]
     Active Substance: HYDROMORPHONE
     Indication: Pain
     Dosage: 2.6 UNK QID
     Route: 065
     Dates: start: 20180403, end: 20180403
  22. INNOHEP [Concomitant]
     Active Substance: TINZAPARIN SODIUM
     Indication: Product used for unknown indication
     Dosage: 0.7 ML, QD
     Route: 065
     Dates: start: 20180605, end: 20180813
  23. MAGNESIUM [Concomitant]
     Active Substance: MAGNESIUM
     Indication: Prophylaxis
     Dosage: 6000 MG, QD
     Route: 065
     Dates: start: 20180827
  24. Novalgin [Concomitant]
     Indication: Pain
     Route: 065
  25. XGEVA [Concomitant]
     Active Substance: DENOSUMAB
     Indication: Prophylaxis
     Dosage: 120 MG, QMO
     Route: 065
     Dates: start: 20190603
  26. ZOMETA [Concomitant]
     Active Substance: ZOLEDRONIC ACID
     Indication: Prophylaxis
     Dosage: 4 MG, QMO
     Route: 065
     Dates: start: 20170829, end: 20190506

REACTIONS (1)
  - Leukopenia [Recovered/Resolved]

NARRATIVE: CASE EVENT DATE: 20180508
